FAERS Safety Report 17930341 (Version 2)
Quarter: 2020Q2

REPORT INFORMATION
  Report Type: Spontaneous
  Country: IE (occurrence: IE)
  Receive Date: 20200623
  Receipt Date: 20200624
  Transmission Date: 20200714
  Serious: Yes (Hospitalization)
  Sender: FDA-Public Use
  Company Number: IE-ASTRAZENECA-2020SE77161

PATIENT
  Sex: Female

DRUGS (3)
  1. CORDARONE X [Interacting]
     Active Substance: AMIODARONE HYDROCHLORIDE
     Route: 065
  2. ESOMEPRAZOLE MAGNESIUM. [Suspect]
     Active Substance: ESOMEPRAZOLE MAGNESIUM
     Route: 048
  3. LINEZOLID. [Interacting]
     Active Substance: LINEZOLID
     Route: 048

REACTIONS (3)
  - Ventricular tachycardia [Unknown]
  - Electrocardiogram QT prolonged [Unknown]
  - Drug interaction [Unknown]
